FAERS Safety Report 4347327-X (Version None)
Quarter: 2004Q2

REPORT INFORMATION
  Report Type: 
  Country: None (occurrence: None)
  Receive Date: 20040426
  Receipt Date: 20040426
  Transmission Date: 20050107
  Serious: Yes (Other)
  Sender: FDA-Public Use
  Company Number: None

PATIENT
  Age: 13 Year
  Sex: Male
  Weight: 49.8957 kg

DRUGS (2)
  1. WELLBUTRIN SR [Suspect]
     Indication: AFFECTIVE DISORDER
     Dosage: 100 MG DAILY ORAL
     Route: 048
     Dates: start: 20040307, end: 20040309
  2. WELLBUTRIN SR [Suspect]
     Indication: ATTENTION DEFICIT/HYPERACTIVITY DISORDER
     Dosage: 100 MG DAILY ORAL
     Route: 048
     Dates: start: 20040307, end: 20040309

REACTIONS (3)
  - ABNORMAL BEHAVIOUR [None]
  - PHARMACEUTICAL PRODUCT COMPLAINT [None]
  - THERAPEUTIC RESPONSE DECREASED [None]
